FAERS Safety Report 9654690 (Version 4)
Quarter: 2014Q1

REPORT INFORMATION
  Report Type: Spontaneous
  Country: US (occurrence: US)
  Receive Date: 20131029
  Receipt Date: 20140113
  Transmission Date: 20141002
  Serious: Yes (Hospitalization)
  Sender: FDA-Public Use
  Company Number: US-009507513-1310USA004789

PATIENT
  Age: 62 Year
  Sex: Male

DRUGS (6)
  1. VICTRELIS [Suspect]
     Indication: CHRONIC HEPATITIS C
     Dosage: UNK
     Route: 048
     Dates: end: 201311
  2. REBETOL [Suspect]
     Indication: CHRONIC HEPATITIS C
     Dosage: 1400 MG, QD
     Route: 065
     Dates: start: 20130809
  3. REBETOL [Suspect]
     Dosage: 7 IN 1 DAY
  4. REBETOL [Suspect]
     Dosage: 4 IN 1 DAY
     Dates: end: 201312
  5. PEGASYS [Suspect]
     Indication: CHRONIC HEPATITIS C
     Dosage: PROCLICK, 180 MICROGRAM, QW
     Route: 065
     Dates: start: 20130809, end: 201312
  6. SERTRALINE HYDROCHLORIDE [Concomitant]
     Indication: DEPRESSION
     Dosage: 50 MG, QD

REACTIONS (29)
  - Blood potassium decreased [Unknown]
  - Hypotension [Unknown]
  - Insomnia [Unknown]
  - Fatigue [Unknown]
  - Pain [Unknown]
  - Hypophagia [Unknown]
  - Pain [Unknown]
  - Neuropathy peripheral [Unknown]
  - Retching [Unknown]
  - Dizziness postural [Unknown]
  - Dysgeusia [Unknown]
  - Back pain [Not Recovered/Not Resolved]
  - Malaise [Unknown]
  - Dyspnoea [Not Recovered/Not Resolved]
  - Abasia [Unknown]
  - Dizziness [Not Recovered/Not Resolved]
  - Chest discomfort [Unknown]
  - Arthralgia [Unknown]
  - Joint lock [Unknown]
  - Vomiting [Unknown]
  - Dysgeusia [Unknown]
  - Nausea [Unknown]
  - Sciatica [Not Recovered/Not Resolved]
  - Joint swelling [Unknown]
  - Confusional state [Unknown]
  - Heart rate increased [Unknown]
  - Arrhythmia [Unknown]
  - Loss of consciousness [Unknown]
  - Fall [Unknown]
